FAERS Safety Report 25396534 (Version 1)
Quarter: 2025Q2

REPORT INFORMATION
  Report Type: Spontaneous
  Country: US (occurrence: None)
  Receive Date: 20250603
  Receipt Date: 20250603
  Transmission Date: 20250717
  Serious: Yes (Hospitalization)
  Sender: FDA-CTU
  Company Number: None

PATIENT
  Age: 75 Year
  Sex: Female
  Weight: 59.4 kg

DRUGS (7)
  1. XARELTO [Suspect]
     Active Substance: RIVAROXABAN
     Dates: start: 20230101, end: 20241230
  2. VALSARTAN [Suspect]
     Active Substance: VALSARTAN
  3. LEVOTHYROXINE [Suspect]
     Active Substance: LEVOTHYROXINE
  4. ELIQUIS [Concomitant]
     Active Substance: APIXABAN
  5. REPATHA [Concomitant]
     Active Substance: EVOLOCUMAB
  6. TRULICITY [Concomitant]
     Active Substance: DULAGLUTIDE
  7. FARXIGA [Concomitant]
     Active Substance: DAPAGLIFLOZIN PROPANEDIOL

REACTIONS (5)
  - Vomiting [None]
  - Norovirus infection [None]
  - Drug level changed [None]
  - Thrombosis [None]
  - Drug ineffective [None]

NARRATIVE: CASE EVENT DATE: 20240625
